FAERS Safety Report 4970197-3 (Version None)
Quarter: 2006Q2

REPORT INFORMATION
  Report Type: 
  Country: None (occurrence: None)
  Receive Date: 20060412
  Receipt Date: 20051123
  Transmission Date: 20061013
  Serious: Yes (Death)
  Sender: FDA-Public Use
  Company Number: CA-JNJFOC-20060402186

PATIENT
  Age: 47 Year
  Sex: Female
  Weight: 74 kg

DRUGS (11)
  1. REOPRO [Suspect]
     Indication: MYOCARDIAL INFARCTION
     Route: 042
  2. ACETYLSALICYLIC ACID SRT [Concomitant]
  3. PLAVIX [Concomitant]
  4. DOPAMINE [Concomitant]
  5. LEVOPHED [Concomitant]
  6. PANTOPRAZOLE SODIUM [Concomitant]
  7. DOBUTREX [Concomitant]
  8. FENTANYL [Concomitant]
  9. VERSED [Concomitant]
  10. GEMCITABINE [Concomitant]
  11. CISPLATIN [Concomitant]

REACTIONS (1)
  - CARDIOGENIC SHOCK [None]
